FAERS Safety Report 15416393 (Version 1)
Quarter: 2018Q3

REPORT INFORMATION
  Report Type: Spontaneous
  Country: CZ (occurrence: CZ)
  Receive Date: 20180924
  Receipt Date: 20180924
  Transmission Date: 20181010
  Serious: Yes (Death, Other)
  Sender: FDA-Public Use
  Company Number: PHHY2018CZ098102

PATIENT
  Age: 52 Year
  Sex: Female

DRUGS (10)
  1. PACLITAXEL. [Suspect]
     Active Substance: PACLITAXEL
     Dosage: 175 MG/M2, 6 CYCLIC (Q3W)
     Route: 065
     Dates: end: 201305
  2. PACLITAXEL. [Suspect]
     Active Substance: PACLITAXEL
     Dosage: 175 MG/M2, Q3W
     Route: 065
     Dates: end: 201111
  3. CARBOPLATIN. [Suspect]
     Active Substance: CARBOPLATIN
     Indication: OVARIAN CANCER
     Dosage: UNK, CYCLIC
     Route: 065
     Dates: start: 201105
  4. OLAPARIB. [Suspect]
     Active Substance: OLAPARIB
     Indication: CHEMOTHERAPY
     Dosage: 400 MG, BID
     Route: 048
  5. PACLITAXEL. [Suspect]
     Active Substance: PACLITAXEL
     Indication: OVARIAN CANCER
     Dosage: 175 MG/M2, CYCLIC
     Route: 065
     Dates: start: 201105
  6. DOXORUBICIN [Suspect]
     Active Substance: DOXORUBICIN
     Indication: OVARIAN CANCER
     Dosage: UNK UNK, CYCLIC (Q4W)
     Route: 065
     Dates: start: 201604
  7. CARBOPLATIN. [Suspect]
     Active Substance: CARBOPLATIN
     Dosage: UNK, Q3W
     Route: 065
     Dates: end: 201111
  8. PACLITAXEL. [Suspect]
     Active Substance: PACLITAXEL
     Dosage: 80 MG/M2, QW
     Route: 065
     Dates: start: 201608, end: 201701
  9. CARBOPLATIN. [Suspect]
     Active Substance: CARBOPLATIN
     Dosage: UNK UNK, 6 CYCLIC (Q3W)
     Route: 065
     Dates: end: 201305
  10. CARBOPLATIN. [Suspect]
     Active Substance: CARBOPLATIN
     Dosage: UNK UNK, CYCLIC (Q4W)
     Route: 065
     Dates: start: 201604

REACTIONS (9)
  - Metastases to peritoneum [Fatal]
  - Abdominal distension [Fatal]
  - Constipation [Fatal]
  - Neuropathy peripheral [Not Recovered/Not Resolved]
  - General physical health deterioration [Unknown]
  - Onychoclasis [Unknown]
  - Carbohydrate antigen 125 increased [Unknown]
  - Malignant neoplasm progression [Fatal]
  - Decreased appetite [Fatal]

NARRATIVE: CASE EVENT DATE: 2011
